FAERS Safety Report 20953411 (Version 1)
Quarter: 2022Q2

REPORT INFORMATION
  Report Type: Spontaneous
  Country: DE (occurrence: DE)
  Receive Date: 20220613
  Receipt Date: 20220613
  Transmission Date: 20220721
  Serious: Yes (Other)
  Sender: FDA-Public Use
  Company Number: DE-TEVA-2022-DE-2046467

PATIENT
  Age: 35 Year
  Sex: Female

DRUGS (5)
  1. PROGESTERONE [Suspect]
     Active Substance: PROGESTERONE
     Indication: Assisted reproductive technology
     Dosage: 600 MILLIGRAM DAILY;
     Route: 067
  2. FOLLITROPIN BETA [Suspect]
     Active Substance: FOLLITROPIN BETA
     Indication: Assisted reproductive technology
     Dates: start: 20220414, end: 20220425
  3. GONADOTROPHIN, CHORIONIC [Suspect]
     Active Substance: GONADOTROPHIN, CHORIONIC
     Indication: Assisted reproductive technology
     Dates: start: 20220414, end: 20220425
  4. GONADOTROPHIN, CHORIONIC [Suspect]
     Active Substance: GONADOTROPHIN, CHORIONIC
     Indication: Assisted reproductive technology
     Dates: start: 20220414
  5. GONADORELIN [Suspect]
     Active Substance: GONADORELIN
     Indication: Assisted reproductive technology
     Dates: start: 20220414, end: 20220425

REACTIONS (2)
  - Ovarian hyperstimulation syndrome [Recovered/Resolved]
  - Generalised oedema [Recovered/Resolved]

NARRATIVE: CASE EVENT DATE: 20220507
